FAERS Safety Report 19040898 (Version 3)
Quarter: 2022Q1

REPORT INFORMATION
  Report Type: Report from Study
  Country: US (occurrence: None)
  Receive Date: 20210322
  Receipt Date: 20220202
  Transmission Date: 20220423
  Serious: Yes (Hospitalization, Other)
  Sender: FDA-Public Use
  Company Number: US-ROCHE-2542069

PATIENT
  Age: 56 Year
  Sex: Male
  Weight: 103.8 kg

DRUGS (3)
  1. ATEZOLIZUMAB [Suspect]
     Active Substance: ATEZOLIZUMAB
     Indication: Bladder cancer
     Dosage: DATE OF LAST ADMINISTERED DOSE: 13/JAN/2020, 17/FEB/2020, 29/JUN/2020
     Route: 042
     Dates: start: 20200113
  2. CISPLATIN [Suspect]
     Active Substance: CISPLATIN
     Indication: Bladder cancer
     Dosage: DOSE: 240 MG?DATE OF LAST ADMINISTERED DOSE: 27/JAN/2020
     Route: 042
     Dates: start: 20200113, end: 20200127
  3. TYLENOL [Concomitant]
     Active Substance: ACETAMINOPHEN
     Dates: start: 20200127

REACTIONS (7)
  - Urinary tract infection [Recovering/Resolving]
  - Calculus bladder [Recovered/Resolved]
  - Cystitis radiation [Recovering/Resolving]
  - Urinary tract infection [Recovering/Resolving]
  - Calculus bladder [Recovering/Resolving]
  - Cystitis noninfective [Unknown]
  - Nephrolithiasis [Unknown]

NARRATIVE: CASE EVENT DATE: 20200128
